FAERS Safety Report 5031577-3 (Version None)
Quarter: 2006Q2

REPORT INFORMATION
  Report Type: 
  Country: None (occurrence: None)
  Receive Date: 20060621
  Receipt Date: 20060601
  Transmission Date: 20061013
  Serious: Yes (Other)
  Sender: FDA-Public Use
  Company Number: US-GLAXOSMITHKLINE-B0426106A

PATIENT
  Age: 41 Year
  Sex: Female
  Weight: 74 kg

DRUGS (20)
  1. GW679769 [Suspect]
     Route: 042
     Dates: start: 20060530, end: 20060530
  2. ZOFRAN [Suspect]
     Dosage: 4MG SINGLE DOSE
     Route: 042
     Dates: start: 20060530, end: 20060530
  3. OXYGEN [Concomitant]
     Dosage: 30L CONTINUOUS
     Route: 055
     Dates: start: 20060530, end: 20060530
  4. VERSED [Concomitant]
     Dosage: 4MG PER DAY
     Route: 042
     Dates: start: 20060530, end: 20060530
  5. MORPHINE SULFATE [Concomitant]
     Dosage: 6MG PER DAY
     Route: 042
     Dates: start: 20060530, end: 20060530
  6. SEVOFLURANE [Concomitant]
     Dosage: 14.5U CONTINUOUS
     Route: 055
     Dates: start: 20060530, end: 20060530
  7. PROPOFOL [Concomitant]
     Dosage: 150MG PER DAY
     Route: 055
     Dates: start: 20060530, end: 20060530
  8. FENTANYL TRANSDERMAL SYSTEM [Concomitant]
     Dosage: 350U CONTINUOUS
     Route: 042
     Dates: start: 20060530, end: 20060530
  9. SUCCINYLCHOLINE [Concomitant]
     Indication: NEUROMUSCULAR BLOCKING THERAPY
     Dosage: 100UG PER DAY
     Route: 042
     Dates: start: 20060530, end: 20060530
  10. ZEMURON [Concomitant]
     Indication: NEUROMUSCULAR BLOCKING THERAPY
     Dosage: 40MG CONTINUOUS
     Route: 042
     Dates: start: 20060530, end: 20060530
  11. BICITRA [Concomitant]
     Dosage: 30ML PER DAY
     Route: 042
     Dates: start: 20060530, end: 20060530
  12. LIDOCAINE [Concomitant]
     Dosage: 100MG PER DAY
     Route: 042
     Dates: start: 20060530, end: 20060530
  13. PERCOCET [Concomitant]
     Indication: ABDOMINAL PAIN
     Dosage: .5TAB AS REQUIRED
     Route: 048
     Dates: start: 20050604
  14. METAMUCIL [Concomitant]
     Indication: FLATULENCE
     Dosage: 1TBS AS REQUIRED
     Route: 048
     Dates: start: 20050604
  15. DECADRON [Concomitant]
     Dosage: 12MG AS REQUIRED
     Route: 042
     Dates: start: 20060530, end: 20060606
  16. DEMEROL [Concomitant]
     Dosage: 1MG CONTINUOUS
     Route: 042
     Dates: start: 20060530, end: 20060531
  17. DARVOCET [Concomitant]
     Dosage: 2TAB AS REQUIRED
     Route: 048
     Dates: start: 20060531, end: 20060531
  18. DILAUDID [Concomitant]
     Dosage: 4MG AS REQUIRED
     Route: 048
     Dates: start: 20060531, end: 20060603
  19. PERCOCET [Concomitant]
     Dosage: 1TBS AS REQUIRED
     Route: 048
     Dates: start: 20060603, end: 20060603
  20. ANCEF [Concomitant]
     Indication: INFECTION PROPHYLAXIS
     Dosage: 1G THREE TIMES PER DAY
     Route: 042
     Dates: start: 20060530, end: 20060531

REACTIONS (1)
  - HEPATIC ENZYME INCREASED [None]
